FAERS Safety Report 9561212 (Version 2)
Quarter: 2013Q4

REPORT INFORMATION
  Report Type: Spontaneous
  Country: US (occurrence: US)
  Receive Date: 20130927
  Receipt Date: 20131011
  Transmission Date: 20140711
  Serious: Yes (Other)
  Sender: FDA-Public Use
  Company Number: US-ROCHE-1276196

PATIENT
  Age: 55 Year
  Sex: Female
  Weight: 71.73 kg

DRUGS (8)
  1. PERJETA [Suspect]
     Indication: HER-2 POSITIVE BREAST CANCER
     Dosage: MAINTENANCE DOSE.
     Route: 042
     Dates: end: 20130913
  2. PERJETA [Suspect]
     Dosage: CYCLE ONE LOADING DOSE.
     Route: 042
     Dates: start: 20130821
  3. HERCEPTIN [Suspect]
     Indication: HER-2 POSITIVE BREAST CANCER
     Dosage: NOT GIVEN ON DAY OF ANAPHYLACTIC REACTION.
     Route: 042
     Dates: start: 201001
  4. COMPAZINE [Concomitant]
     Indication: HER-2 POSITIVE BREAST CANCER
     Route: 065
     Dates: start: 201001
  5. OXYCODONE [Concomitant]
     Indication: PAIN
  6. ZOFRAN [Concomitant]
     Indication: NAUSEA
  7. DEXAMETHASONE [Concomitant]
  8. TAXOTERE [Concomitant]
     Indication: BREAST CANCER
     Route: 065
     Dates: start: 20130821

REACTIONS (9)
  - Anaphylactic reaction [Unknown]
  - Anxiety [Unknown]
  - Flushing [Recovered/Resolved]
  - Burning sensation [Unknown]
  - Loss of consciousness [Unknown]
  - Nausea [Unknown]
  - Vomiting [Unknown]
  - Tachycardia [Recovered/Resolved]
  - Syncope [Recovered/Resolved]
